FAERS Safety Report 8484967 (Version 13)
Quarter: 2013Q1

REPORT INFORMATION
  Report Type: Spontaneous
  Country: US (occurrence: US)
  Receive Date: 20120330
  Receipt Date: 20130125
  Transmission Date: 20140127
  Serious: Yes (Hospitalization, Other)
  Sender: FDA-Public Use
  Company Number: US-PFIZER INC-2012077935

PATIENT
  Age: 66 Year
  Sex: Female

DRUGS (8)
  1. NEURONTIN [Suspect]
     Indication: NEUROPATHY PERIPHERAL
     Dosage: 100 MG, 3X/DAY
     Route: 048
     Dates: end: 201203
  2. EFFEXOR XR [Suspect]
     Indication: DEPRESSION
     Dosage: 75 MG, 3X/DAY
     Route: 048
  3. PROTONIX [Suspect]
     Indication: GASTROOESOPHAGEAL REFLUX DISEASE
     Dosage: 50 MG, 1X/DAY
     Route: 048
     Dates: end: 201203
  4. PROTONIX [Suspect]
     Dosage: 40 MG, UNK
  5. PREMARIN [Suspect]
     Indication: HORMONE REPLACEMENT THERAPY
     Dosage: 0.9 MG, 1X/DAY
     Route: 048
  6. CALAN SR [Suspect]
     Dosage: 240 MG, UNK
  7. CALAN [Concomitant]
     Dosage: UNK
  8. ALLEGRA [Concomitant]
     Dosage: UNK

REACTIONS (8)
  - Arthropathy [Unknown]
  - Pharyngeal disorder [Unknown]
  - Thyroid disorder [Unknown]
  - Heart rate increased [Recovering/Resolving]
  - Vitamin D deficiency [Unknown]
  - Blood parathyroid hormone abnormal [Unknown]
  - Pain [Recovered/Resolved]
  - Speech disorder [Unknown]
